FAERS Safety Report 24251127 (Version 1)
Quarter: 2024Q3

REPORT INFORMATION
  Report Type: Spontaneous
  Country: CA (occurrence: CA)
  Receive Date: 20240826
  Receipt Date: 20240826
  Transmission Date: 20241017
  Serious: Yes (Other)
  Sender: SANDOZ
  Company Number: CA-SANDOZ-SDZ2024CA074563

PATIENT
  Age: 35 Year
  Sex: Female

DRUGS (23)
  1. CRISABOROLE [Suspect]
     Active Substance: CRISABOROLE
     Indication: Cheilitis
     Dosage: UNK, Q12H
     Route: 065
  2. CRISABOROLE [Suspect]
     Active Substance: CRISABOROLE
     Indication: Dermatitis atopic
     Dosage: UNK, Q12H
     Route: 065
  3. CRISABOROLE [Suspect]
     Active Substance: CRISABOROLE
     Dosage: UNK
     Route: 065
  4. DAPSONE [Suspect]
     Active Substance: DAPSONE
     Indication: Cheilitis
     Dosage: 5 %, Q12H
     Route: 065
  5. DAPSONE [Suspect]
     Active Substance: DAPSONE
     Dosage: UNK
     Route: 065
  6. DOXYCYCLINE [Suspect]
     Active Substance: DOXYCYCLINE\DOXYCYCLINE HYCLATE
     Indication: Cheilitis
     Dosage: UNK
     Route: 065
  7. DUPILUMAB [Suspect]
     Active Substance: DUPILUMAB
     Indication: Cheilitis
     Dosage: 300 MG, Q4W
     Route: 065
  8. DUPILUMAB [Suspect]
     Active Substance: DUPILUMAB
     Dosage: 600 MG
     Route: 065
  9. HYDROCORTISONE [Suspect]
     Active Substance: HYDROCORTISONE\HYDROCORTISONE ACETATE
     Indication: Cheilitis
     Dosage: 0.2 %
     Route: 065
  10. ISOTRETINOIN [Suspect]
     Active Substance: ISOTRETINOIN
     Indication: Oral pustule
     Dosage: 10 MG, Q24H
     Route: 065
  11. ISOTRETINOIN [Suspect]
     Active Substance: ISOTRETINOIN
     Indication: Cheilitis
     Dosage: UNK
     Route: 065
  12. METHOTREXATE [Suspect]
     Active Substance: METHOTREXATE
     Indication: Cheilitis
     Dosage: UNK
     Route: 065
  13. METHOTREXATE [Suspect]
     Active Substance: METHOTREXATE
     Dosage: UNK
     Route: 065
  14. METHOTREXATE [Suspect]
     Active Substance: METHOTREXATE
     Indication: Oral pustule
     Dosage: UNK, METHOTREXATE INJECTION, USP
     Route: 013
  15. METHOTREXATE [Suspect]
     Active Substance: METHOTREXATE
     Indication: Cheilitis
     Dosage: UNK, METHOTREXATE INJECTION, USP
     Route: 065
  16. TACROLIMUS [Suspect]
     Active Substance: TACROLIMUS
     Indication: Cheilitis
     Dosage: UNK
     Route: 065
  17. TACROLIMUS [Suspect]
     Active Substance: TACROLIMUS
     Indication: Prophylaxis
     Dosage: UNK
     Route: 065
  18. TACROLIMUS [Suspect]
     Active Substance: TACROLIMUS
     Dosage: UNK
     Route: 065
  19. TACROLIMUS [Suspect]
     Active Substance: TACROLIMUS
     Indication: Prophylaxis
     Dosage: UNK
     Route: 061
  20. TACROLIMUS [Suspect]
     Active Substance: TACROLIMUS
     Indication: Cheilitis
  21. HYDROCORTISONE VALERATE [Concomitant]
     Active Substance: HYDROCORTISONE VALERATE
     Indication: Cheilitis
     Dosage: UNK
     Route: 065
  22. PARAFFIN [Concomitant]
     Active Substance: PARAFFIN
     Indication: Cheilitis
     Route: 065
  23. VALACYCLOVIR HYDROCHLORIDE [Concomitant]
     Active Substance: VALACYCLOVIR HYDROCHLORIDE
     Indication: Prophylaxis
     Dosage: 500 MG, Q12H
     Route: 065

REACTIONS (7)
  - Cheilitis [Recovered/Resolved]
  - Condition aggravated [Recovered/Resolved]
  - Eyelid irritation [Recovered/Resolved]
  - Dermatitis [Recovered/Resolved]
  - Off label use [Recovered/Resolved]
  - Therapeutic product ineffective [Recovered/Resolved]
  - Drug ineffective [Recovered/Resolved]
